FAERS Safety Report 9726334 (Version 1)
Quarter: 2013Q4

REPORT INFORMATION
  Report Type: Spontaneous
  Country: DE (occurrence: None)
  Receive Date: 20131129
  Receipt Date: 20131129
  Transmission Date: 20140711
  Serious: Yes (Other)
  Sender: FDA-Public Use
  Company Number: AUR-APL-2013-09784

PATIENT
  Age: 25 Year
  Sex: Female
  Weight: 80 kg

DRUGS (4)
  1. SERTRALINE [Suspect]
     Indication: DEPRESSION
     Route: 048
     Dates: start: 20121001, end: 20130605
  2. LIPROLOG LISPRO [Suspect]
     Indication: TYPE 1 DIABETES MELLITUS
     Route: 058
     Dates: start: 20121001, end: 20130605
  3. LANTUS [Suspect]
     Indication: TYPE 1 DIABETES MELLITUS
     Route: 058
     Dates: start: 20121001, end: 20130605
  4. L-THYROXIN (LEVOTHYROXINE SODIUM) [Concomitant]

REACTIONS (4)
  - Preterm premature rupture of membranes [None]
  - Foetal heart rate deceleration abnormality [None]
  - Caesarean section [None]
  - Exposure during pregnancy [None]
